FAERS Safety Report 21713161 (Version 1)
Quarter: 2022Q4

REPORT INFORMATION
  Report Type: Spontaneous
  Country: US (occurrence: US)
  Receive Date: 20221212
  Receipt Date: 20221212
  Transmission Date: 20230113
  Serious: Yes (Disabling)
  Sender: FDA-Public Use
  Company Number: US-ORG100016242-2021000769

PATIENT
  Age: 72 Year
  Sex: Male
  Weight: 85.5 kg

DRUGS (2)
  1. EXPAREL [Suspect]
     Active Substance: BUPIVACAINE
     Indication: Analgesic therapy
     Route: 050
     Dates: start: 20210422, end: 20210422
  2. MARCAINE [Concomitant]
     Active Substance: BUPIVACAINE HYDROCHLORIDE
     Indication: Analgesic therapy
     Route: 050
     Dates: start: 20210422, end: 20210422

REACTIONS (2)
  - Paraesthesia [Not Recovered/Not Resolved]
  - Administration site swelling [Recovered/Resolved]

NARRATIVE: CASE EVENT DATE: 20210422
